FAERS Safety Report 7579556-6 (Version None)
Quarter: 2011Q2

REPORT INFORMATION
  Report Type: 
  Country: None (occurrence: None)
  Receive Date: 20110629
  Receipt Date: 20110617
  Transmission Date: 20111010
  Serious: Yes (Hospitalization)
  Sender: FDA-Public Use
  Company Number: GB-JNJFOC-20110409392

PATIENT
  Age: 65 Year
  Sex: Male
  Weight: 82 kg

DRUGS (7)
  1. GOLIMUMAB [Suspect]
     Route: 058
     Dates: start: 20101117, end: 20110317
  2. METHOTREXATE [Concomitant]
     Indication: RHEUMATOID ARTHRITIS
     Route: 048
     Dates: start: 20081001, end: 20110417
  3. FOLIC ACID [Concomitant]
     Indication: PROPHYLAXIS
     Route: 048
     Dates: start: 20081001
  4. IBUPROFEN [Concomitant]
     Indication: INFLAMMATION
     Route: 048
     Dates: start: 20080101
  5. GOLIMUMAB [Suspect]
     Indication: RHEUMATOID ARTHRITIS
     Route: 058
     Dates: start: 20110310
  6. SERETIDE [Concomitant]
     Indication: ASTHMA
     Route: 055
     Dates: start: 19780101
  7. MOMETASONE FUROATE [Concomitant]
     Indication: PROPHYLAXIS
     Route: 045
     Dates: start: 19780101

REACTIONS (1)
  - CHOLECYSTITIS [None]
